FAERS Safety Report 23483376 (Version 2)
Quarter: 2024Q1

REPORT INFORMATION
  Report Type: Spontaneous
  Country: US (occurrence: US)
  Receive Date: 20240205
  Receipt Date: 20240207
  Transmission Date: 20240409
  Serious: Yes (Other)
  Sender: FDA-Public Use
  Company Number: US-PFIZER INC-202400030393

PATIENT
  Age: 51 Year
  Sex: Female

DRUGS (5)
  1. MORPHINE SULFATE [Suspect]
     Active Substance: MORPHINE SULFATE
     Dosage: UNK
  2. PIPERACILLIN SODIUM\TAZOBACTAM SODIUM [Concomitant]
     Active Substance: PIPERACILLIN SODIUM\TAZOBACTAM SODIUM
     Indication: Pneumonia aspiration
     Dosage: UNK
  3. VANCOMYCIN [Concomitant]
     Active Substance: VANCOMYCIN
     Indication: Pneumonia aspiration
     Dosage: UNK
  4. EPINEPHRINE [Concomitant]
     Active Substance: EPINEPHRINE
     Dosage: UNK
  5. AMPICILLIN SODIUM\SULBACTAM SODIUM [Concomitant]
     Active Substance: AMPICILLIN SODIUM\SULBACTAM SODIUM
     Indication: Pneumonia aspiration
     Dosage: UNK

REACTIONS (2)
  - Bile duct stone [Unknown]
  - Biliary dilatation [Unknown]
